FAERS Safety Report 17198654 (Version 3)
Quarter: 2022Q2

REPORT INFORMATION
  Report Type: Other
  Country: US (occurrence: None)
  Receive Date: 20191225
  Receipt Date: 20220503
  Transmission Date: 20220720
  Serious: Yes (Other)
  Sender: FDA-Public Use
  Company Number: US-ROCHE-2456991

PATIENT
  Age: 38 Year
  Sex: Female
  Weight: 81.266 kg

DRUGS (4)
  1. OCREVUS [Suspect]
     Active Substance: OCRELIZUMAB
     Indication: Multiple sclerosis
     Dosage: PREVIOUS DATE OF TREATMENT: 06/MAY/2019
     Route: 065
     Dates: start: 20181022
  2. OCREVUS [Suspect]
     Active Substance: OCRELIZUMAB
     Indication: Multiple sclerosis
     Route: 065
     Dates: start: 20181106
  3. OCREVUS [Suspect]
     Active Substance: OCRELIZUMAB
     Route: 042
  4. METHYLPREDNISOLONE [Concomitant]
     Active Substance: METHYLPREDNISOLONE
     Dosage: PRE-TREATMENT TO LAST OCREVUS INFUSION

REACTIONS (10)
  - Haemorrhage [Unknown]
  - Urinary tract infection [Unknown]
  - Cystitis [Unknown]
  - Bone pain [Unknown]
  - Arthralgia [Unknown]
  - Back pain [Unknown]
  - Pain in extremity [Recovered/Resolved]
  - Migraine [Unknown]
  - Hypertonia [Unknown]
  - Ill-defined disorder [Unknown]

NARRATIVE: CASE EVENT DATE: 20191125
